FAERS Safety Report 16397377 (Version 2)
Quarter: 2019Q2

REPORT INFORMATION
  Report Type: Spontaneous
  Country: US (occurrence: US)
  Receive Date: 20190606
  Receipt Date: 20190614
  Transmission Date: 20190711
  Serious: No
  Sender: FDA-Public Use
  Company Number: US-009507513-1905USA013904

PATIENT
  Sex: Female

DRUGS (1)
  1. NUVARING [Suspect]
     Active Substance: ETHINYL ESTRADIOL\ETONOGESTREL
     Indication: POLYCYSTIC OVARIES
     Dosage: 1 RING
     Route: 067

REACTIONS (4)
  - Device expulsion [Not Recovered/Not Resolved]
  - Product use in unapproved indication [Unknown]
  - Emotional disorder [Not Recovered/Not Resolved]
  - Product quality issue [Unknown]
